FAERS Safety Report 16109185 (Version 1)
Quarter: 2019Q1

REPORT INFORMATION
  Report Type: Spontaneous
  Country: US (occurrence: US)
  Receive Date: 20190323
  Receipt Date: 20190323
  Transmission Date: 20190418
  Serious: No
  Sender: FDA-Public Use
  Company Number: US-THERAPEUTICSMD-2019TMD00217

PATIENT
  Age: 70 Year
  Sex: Female
  Weight: 65.31 kg

DRUGS (4)
  1. VITAMINS [Concomitant]
     Active Substance: VITAMINS
  2. IMVEXXY [Suspect]
     Active Substance: ESTRADIOL
     Indication: HORMONE REPLACEMENT THERAPY
     Dosage: 1 DOSAGE UNITS AT BEDTIME (BEFORE BED)
     Route: 067
     Dates: start: 20190201, end: 20190201
  3. IMVEXXY [Suspect]
     Active Substance: ESTRADIOL
     Indication: VULVOVAGINAL DRYNESS
  4. UNKNOWN HEART MEDICINE [Concomitant]

REACTIONS (5)
  - Off label use [Recovered/Resolved]
  - Administration site warmth [Recovered/Resolved]
  - Vulvovaginal discomfort [Recovered/Resolved]
  - Cystitis [Recovered/Resolved]
  - Contraindicated product prescribed [Recovered/Resolved]

NARRATIVE: CASE EVENT DATE: 201902
